FAERS Safety Report 8248530-9 (Version None)
Quarter: 2012Q1

REPORT INFORMATION
  Report Type: 
  Country: None (occurrence: None)
  Receive Date: 20120330
  Receipt Date: 20120315
  Transmission Date: 20120608
  Serious: Yes (Death)
  Sender: FDA-Public Use
  Company Number: PT-BAXTER-2012BAX000004

PATIENT
  Sex: Female

DRUGS (17)
  1. RILMENIDINE [Concomitant]
     Route: 048
  2. CALCIUM CARBONATE [Concomitant]
     Route: 065
  3. INSULIN [Concomitant]
     Route: 065
  4. EXTRANEAL [Suspect]
     Route: 033
     Dates: start: 20110505, end: 20120314
  5. ISOSORBIDE DINITRATE [Concomitant]
     Route: 048
  6. EPOETIN BETA [Concomitant]
     Route: 058
  7. PHYSIONEAL 40 GLUCOSE 1,36% P/V / 13,6 MG/ML [Suspect]
     Route: 033
     Dates: start: 20110505, end: 20120314
  8. PHYSIONEAL 40 GLUCOSE 1,36% P/V / 13,6 MG/ML [Suspect]
     Route: 033
     Dates: start: 20110505, end: 20120314
  9. IRBESARTAN [Concomitant]
     Route: 048
  10. OMEPRAZOLE [Concomitant]
  11. FOLIC ACID [Concomitant]
     Route: 048
  12. CALCITRIOL [Concomitant]
     Route: 048
  13. NIFEDIPINE [Concomitant]
     Route: 048
  14. FUROSEMIDE [Concomitant]
     Route: 048
  15. IRON [Concomitant]
     Route: 048
  16. LACTULOSE [Concomitant]
     Route: 065
  17. HYDROXYZINE [Concomitant]
     Route: 048

REACTIONS (4)
  - DEATH [None]
  - ASPIRATION [None]
  - MALAISE [None]
  - VOMITING [None]
